FAERS Safety Report 23833810 (Version 2)
Quarter: 2024Q2

REPORT INFORMATION
  Report Type: Spontaneous
  Country: NL (occurrence: NL)
  Receive Date: 20240509
  Receipt Date: 20240524
  Transmission Date: 20240715
  Serious: Yes (Other)
  Sender: FDA-Public Use
  Company Number: None

PATIENT
  Age: 27 Year
  Sex: Female
  Weight: 116 kg

DRUGS (3)
  1. AIMOVIG [Suspect]
     Active Substance: ERENUMAB-AOOE
     Indication: Migraine
     Dosage: 70 MILLIGRAM PER MILLILITRE (70 MILLIGRAM PER MILLILITRE (STRENGTH: 70MG/ML)
     Route: 065
     Dates: start: 20230405, end: 20230705
  2. AIMOVIG [Suspect]
     Active Substance: ERENUMAB-AOOE
     Dosage: 140 MILLIGRAM PER MILLILITRE, QMO (140 MILLIGRAM PER MILLILITRE, QMO (1 PIECE ONCE A MONTH)
     Route: 065
     Dates: start: 20230707, end: 20231107
  3. GALCANEZUMAB [Suspect]
     Active Substance: GALCANEZUMAB
     Indication: Migraine
     Dosage: 120 MILLIGRAM PER MILLILITRE, Q4W (1 PIECE ONCE EVERY 4 WEEKS)
     Route: 065
     Dates: start: 20231108, end: 20240410

REACTIONS (4)
  - Sudden hearing loss [Recovering/Resolving]
  - Breast pain [Recovered/Resolved]
  - Back pain [Not Recovered/Not Resolved]
  - Fatigue [Recovered/Resolved]
